FAERS Safety Report 6860058-7 (Version None)
Quarter: 2010Q3

REPORT INFORMATION
  Report Type: 
  Country: None (occurrence: None)
  Receive Date: 20100720
  Receipt Date: 20100712
  Transmission Date: 20110219
  Serious: Yes (Other)
  Sender: FDA-Public Use
  Company Number: GB-AMGEN-KDL423536

PATIENT

DRUGS (1)
  1. VECTIBIX [Suspect]
     Indication: COLORECTAL CANCER

REACTIONS (6)
  - DRY SKIN [None]
  - PHOTOSENSITIVITY REACTION [None]
  - PURULENCE [None]
  - SECRETION DISCHARGE [None]
  - SKIN FISSURES [None]
  - SKIN INFECTION [None]
